FAERS Safety Report 9278804 (Version 5)
Quarter: 2013Q2

REPORT INFORMATION
  Report Type: Spontaneous
  Country: US (occurrence: US)
  Receive Date: 20130508
  Receipt Date: 20130628
  Transmission Date: 20140414
  Serious: Yes (Other)
  Sender: FDA-Public Use
  Company Number: US-PFIZER INC-2013138808

PATIENT
  Age: 72 Year
  Sex: Female
  Weight: 87.08 kg

DRUGS (18)
  1. VANCOMYCIN HCL [Suspect]
     Indication: LOCAL SWELLING
     Dosage: UNK
     Route: 042
  2. VANCOMYCIN HCL [Suspect]
     Indication: ERYTHEMA
  3. VANCOMYCIN HCL [Suspect]
     Indication: STAPHYLOCOCCAL INFECTION
  4. METOPROLOL [Concomitant]
     Dosage: 50 MG, 2X/DAY
  5. KLOR-CON [Concomitant]
     Dosage: UNK, 2X/DAY
  6. LITHIUM [Concomitant]
     Dosage: UNK, AS NEEDED
  7. LASIX [Concomitant]
     Dosage: 20 MG, 2X/DAY
  8. ASPIRIN [Concomitant]
     Dosage: 81 MG, 1X/DAY
  9. VITAMIN D3 [Concomitant]
     Dosage: 2000 IU, 1X/DAY
  10. SELENIUM [Concomitant]
     Dosage: 50 MG, 1X/DAY
  11. CALCIUM [Concomitant]
     Dosage: 500 MG, 1X/DAY
  12. MAGNESIUM [Concomitant]
     Dosage: 500 MG, 1X/DAY
  13. MULTIMINERALS AND MULTIVITAMINS [Concomitant]
     Indication: SUPPLEMENTATION THERAPY
     Dosage: UNK
  14. LUTEIN [Concomitant]
     Indication: EYE DISORDER
     Dosage: 20 MG, 1X/DAY
  15. NEURONTIN [Concomitant]
     Dosage: 300 MG, AS NEEDED
  16. MOTRIN [Concomitant]
     Dosage: 800 MG, AS NEEDED
  17. TRAMADOL [Concomitant]
     Indication: ARTHRITIS
     Dosage: UNK, 1X/DAY
  18. OMEPRAZOLE [Concomitant]
     Dosage: UNK, 2X/DAY

REACTIONS (4)
  - Rib fracture [Unknown]
  - Fall [Unknown]
  - Neuropathy peripheral [Recovering/Resolving]
  - Neuropathy peripheral [Not Recovered/Not Resolved]
